FAERS Safety Report 9914991 (Version 1)
Quarter: 2014Q1

REPORT INFORMATION
  Report Type: Spontaneous
  Country: CZ (occurrence: CZ)
  Receive Date: 20140220
  Receipt Date: 20140220
  Transmission Date: 20141002
  Serious: Yes (Other)
  Sender: FDA-Public Use
  Company Number: PHHY2014CZ019856

PATIENT
  Age: 27 Year
  Sex: Female

DRUGS (2)
  1. TRAMADOL [Suspect]
     Dosage: 150 MG, UNK
  2. TRAMADOL [Suspect]
     Dosage: 1050 MG, UNK

REACTIONS (6)
  - Hyperhidrosis [Recovered/Resolved]
  - Drug abuse [Unknown]
  - Eating disorder [Unknown]
  - Agitation [Recovered/Resolved]
  - Anxiety [Recovered/Resolved]
  - Drug withdrawal syndrome [Recovered/Resolved]
